FAERS Safety Report 12662941 (Version 3)
Quarter: 2016Q4

REPORT INFORMATION
  Report Type: Report from Study
  Country: US (occurrence: US)
  Receive Date: 20160818
  Receipt Date: 20161122
  Transmission Date: 20170207
  Serious: Yes (Hospitalization)
  Sender: FDA-Public Use
  Company Number: PHEH2016US020231

PATIENT
  Age: 43 Year
  Sex: Female

DRUGS (4)
  1. EXTAVIA [Suspect]
     Active Substance: INTERFERON BETA-1B
     Dosage: WEEKS 7+: 0.25 MG (1 ML), QOD
     Route: 058
  2. EXTAVIA [Suspect]
     Active Substance: INTERFERON BETA-1B
     Indication: MULTIPLE SCLEROSIS
     Dosage: WEEKS 1-2: 0.0652 MG (0.25 ML), QOD
     Route: 058
     Dates: start: 20160804
  3. EXTAVIA [Suspect]
     Active Substance: INTERFERON BETA-1B
     Dosage: WEEKS 3-4: 0.125 MG (0.5 ML), QOD
     Route: 058
  4. EXTAVIA [Suspect]
     Active Substance: INTERFERON BETA-1B
     Dosage: WEEKS 5-6: 0.1875 MG (0.75 ML), QOD
     Route: 058

REACTIONS (9)
  - Pain in extremity [Unknown]
  - Chills [Recovered/Resolved]
  - Pain [Recovered/Resolved]
  - Muscle spasms [Unknown]
  - Somnolence [Unknown]
  - Influenza like illness [Unknown]
  - Injection site pain [Unknown]
  - Blood glucose increased [Unknown]
  - Injection site rash [Unknown]

NARRATIVE: CASE EVENT DATE: 20160804
